FAERS Safety Report 16208598 (Version 1)
Quarter: 2019Q2

REPORT INFORMATION
  Report Type: Spontaneous
  Country: DZ (occurrence: DZ)
  Receive Date: 20190417
  Receipt Date: 20190417
  Transmission Date: 20190711
  Serious: Yes (Other)
  Sender: FDA-Public Use
  Company Number: DZ-ACCORD-123064

PATIENT
  Age: 61 Year
  Sex: Male
  Weight: 52 kg

DRUGS (1)
  1. CAPEMAX (CAPECITABINE) [Suspect]
     Active Substance: CAPECITABINE
     Indication: LARYNGEAL CANCER
     Dosage: 03 CP
     Route: 048
     Dates: start: 20171204, end: 20171219

REACTIONS (1)
  - Cerebral ischaemia [Unknown]
